FAERS Safety Report 26041534 (Version 1)
Quarter: 2025Q4

REPORT INFORMATION
  Report Type: Spontaneous
  Country: CA (occurrence: CA)
  Receive Date: 20251113
  Receipt Date: 20251113
  Transmission Date: 20260119
  Serious: Yes (Other)
  Sender: PFIZER
  Company Number: CA-PFIZER INC-202500222492

PATIENT
  Age: 74 Year
  Sex: Female

DRUGS (2)
  1. IXIFI [Suspect]
     Active Substance: INFLIXIMAB-QBTX
     Indication: Crohn^s disease
     Dosage: 400 MG, EVERY 8 WEEKS
     Route: 042
     Dates: start: 20250814
  2. IXIFI [Suspect]
     Active Substance: INFLIXIMAB-QBTX
     Dosage: 400 MG,EVERY 8 WEEKS
     Route: 042
     Dates: start: 20251009

REACTIONS (1)
  - Cardiac pacemaker replacement [Unknown]

NARRATIVE: CASE EVENT DATE: 20251104
